FAERS Safety Report 9965602 (Version 1)
Quarter: 2014Q1

REPORT INFORMATION
  Report Type: Report from Study
  Country: US (occurrence: US)
  Receive Date: 20140305
  Receipt Date: 20140305
  Transmission Date: 20141002
  Serious: No
  Sender: FDA-Public Use
  Company Number: US-ABBVIE-13P-163-1124429-00

PATIENT
  Age: 23 Year
  Sex: Male

DRUGS (3)
  1. HUMIRA [Suspect]
     Indication: CROHN^S DISEASE
     Dates: start: 20130624, end: 20130624
  2. HUMIRA [Suspect]
     Dates: start: 20130708, end: 20130708
  3. HUMIRA [Suspect]
     Dates: start: 20130722

REACTIONS (2)
  - Injection site pain [Recovering/Resolving]
  - Bronchitis [Recovering/Resolving]
